FAERS Safety Report 22310181 (Version 1)
Quarter: 2023Q2

REPORT INFORMATION
  Report Type: Report from Study
  Country: IT (occurrence: IT)
  Receive Date: 20230511
  Receipt Date: 20230511
  Transmission Date: 20230722
  Serious: Yes (Other)
  Sender: FDA-Public Use
  Company Number: None

PATIENT
  Age: 60 Year
  Sex: Female
  Weight: 50 kg

DRUGS (4)
  1. DOXORUBICIN HYDROCHLORIDE [Suspect]
     Active Substance: DOXORUBICIN HYDROCHLORIDE
     Indication: Breast cancer
     Dosage: DOSAGE: 90 UNIT OF MEASUREMENT: MILLIGRAMS FREQUENCY OF ADMINISTRATION: CYCLIC, ROUTE OF ADMINISTRA
     Route: 042
     Dates: start: 20230306
  2. CYCLOPHOSPHAMIDE [Suspect]
     Active Substance: CYCLOPHOSPHAMIDE
     Indication: Breast cancer
     Dosage: CICLOFOSFAMIDE,  DOSAGE: 900 UNIT OF MEASUREMENT: MILLIGRAMS FREQUENCY OF ADMINISTRATION: CYCLIC RO
     Route: 042
     Dates: start: 20230306
  3. LIPEGFILGRASTIM [Concomitant]
     Active Substance: LIPEGFILGRASTIM
     Indication: Product used for unknown indication
     Dosage: DOSAGE: 6 UNIT OF MEASUREMENT: MILLIGRAMS ROUTE OF ADMINISTRATION: SUBCUTANEOUS
     Route: 058
  4. OMEPRAZOLE [Concomitant]
     Active Substance: OMEPRAZOLE
     Indication: Product used for unknown indication
     Dosage: DOSAGE: 20 UNIT OF MEASURE: MILLIGRAMS ROUTE OF ADMINISTRATION: ORAL
     Route: 048

REACTIONS (2)
  - Diarrhoea [Recovered/Resolved]
  - Chest pain [Recovering/Resolving]

NARRATIVE: CASE EVENT DATE: 20230417
